FAERS Safety Report 26153097 (Version 1)
Quarter: 2025Q4

REPORT INFORMATION
  Report Type: Spontaneous
  Country: US (occurrence: US)
  Receive Date: 20251214
  Receipt Date: 20251214
  Transmission Date: 20260117
  Serious: Yes (Death, Other)
  Sender: UNITED THERAPEUTICS
  Company Number: US-UNITED THERAPEUTICS-UNT-2025-041778

PATIENT
  Age: 39 Year
  Sex: Female

DRUGS (1)
  1. REMODULIN [Suspect]
     Active Substance: TREPROSTINIL
     Indication: Vascular resistance pulmonary increased
     Dosage: 0.002 ?G/KG, CONTINUING
     Route: 041

REACTIONS (3)
  - Haemorrhagic stroke [Fatal]
  - Vascular resistance pulmonary increased [Unknown]
  - Off label use [Unknown]
